FAERS Safety Report 6898230-2 (Version None)
Quarter: 2010Q3

REPORT INFORMATION
  Report Type: 
  Country: None (occurrence: None)
  Receive Date: 20100802
  Receipt Date: 20070919
  Transmission Date: 20110219
  Serious: No
  Sender: FDA-Public Use
  Company Number: US-PFIZER INC-2007078984

PATIENT
  Sex: Female

DRUGS (13)
  1. LYRICA [Suspect]
     Indication: PAIN IN EXTREMITY
     Dates: start: 20070101
  2. LYRICA [Suspect]
     Indication: HYPOAESTHESIA
  3. ATENOLOL [Concomitant]
  4. ACTOS [Concomitant]
  5. LIPITOR [Concomitant]
  6. FISH OIL [Concomitant]
  7. VITAMINS [Concomitant]
  8. NAPROXEN [Concomitant]
  9. VALSARTAN [Concomitant]
     Indication: CARDIAC DISORDER
  10. FUROSEMIDE [Concomitant]
  11. ACETYLSALICYLIC ACID SRT [Concomitant]
  12. ADVAIR DISKUS 100/50 [Concomitant]
  13. LORCET-HD [Concomitant]
     Indication: PAIN

REACTIONS (3)
  - RASH MACULAR [None]
  - SOMNOLENCE [None]
  - WEIGHT INCREASED [None]
